FAERS Safety Report 5472564-0 (Version None)
Quarter: 2007Q3

REPORT INFORMATION
  Report Type: 
  Country: None (occurrence: None)
  Receive Date: 20070926
  Receipt Date: 20070918
  Transmission Date: 20080115
  Serious: Yes (Other)
  Sender: FDA-Public Use
  Company Number: DE-GDP-0715405

PATIENT
  Sex: Female

DRUGS (1)
  1. BENZAC AC 10% (BENZOYL PEROXIDE GEL) [Suspect]

REACTIONS (3)
  - DYSPHAGIA [None]
  - EYE SWELLING [None]
  - SWELLING [None]
